FAERS Safety Report 21486454 (Version 2)
Quarter: 2022Q4

REPORT INFORMATION
  Report Type: Report from Study
  Country: US (occurrence: US)
  Receive Date: 20221020
  Receipt Date: 20221022
  Transmission Date: 20230112
  Serious: Yes (Hospitalization, Other)
  Sender: FDA-Public Use
  Company Number: US-ABBVIE-4167028

PATIENT
  Sex: Female

DRUGS (1)
  1. CREON [Suspect]
     Active Substance: PANCRELIPASE AMYLASE\PANCRELIPASE LIPASE\PANCRELIPASE PROTEASE
     Indication: Pancreatitis
     Dosage: TIME INTERVAL: 0.33333333 DAYS: 36000 INTERNATIONAL UNIT
     Route: 048
     Dates: start: 2020

REACTIONS (8)
  - Vein disorder [Recovering/Resolving]
  - Blood potassium decreased [Unknown]
  - Intestinal obstruction [Unknown]
  - Gait inability [Not Recovered/Not Resolved]
  - Infection [Recovered/Resolved]
  - Hypotension [Recovered/Resolved]
  - Oedema [Not Recovered/Not Resolved]
  - Blood magnesium decreased [Unknown]

NARRATIVE: CASE EVENT DATE: 20220101
